FAERS Safety Report 5994792-8 (Version None)
Quarter: 2008Q4

REPORT INFORMATION
  Report Type: 
  Country: None (occurrence: None)
  Receive Date: 20081212
  Receipt Date: 20080912
  Transmission Date: 20090506
  Serious: No
  Sender: FDA-Public Use
  Company Number: US-ABBOTT-08P-163-0476230-00

PATIENT
  Sex: Female
  Weight: 56.296 kg

DRUGS (13)
  1. HUMIRA [Suspect]
     Indication: CROHN'S DISEASE
     Route: 058
     Dates: start: 20080912, end: 20080912
  2. HUMIRA [Suspect]
  3. HUMIRA [Suspect]
  4. RABEPRAZOLE SODIUM [Concomitant]
     Indication: GASTROOESOPHAGEAL REFLUX DISEASE
     Route: 048
     Dates: start: 20030101
  5. BUDESONIDE [Concomitant]
     Indication: CROHN'S DISEASE
     Route: 048
     Dates: start: 20050101
  6. MERCAPTOPURINE [Concomitant]
     Indication: CROHN'S DISEASE
     Route: 048
     Dates: start: 20030101
  7. PAROXETINE HCL [Concomitant]
     Indication: DEPRESSION
     Route: 048
     Dates: start: 20010101
  8. ACTINEL [Concomitant]
     Indication: MINERAL SUPPLEMENTATION
     Dosage: 1 PILL
     Route: 048
     Dates: start: 20060101
  9. LORAZEPAM [Concomitant]
     Indication: ANXIETY
     Route: 048
     Dates: start: 20030101
  10. VITAMIN FOR WOMEN [Concomitant]
     Indication: VITAMIN SUPPLEMENTATION
     Route: 048
     Dates: start: 19950101
  11. IRON [Concomitant]
     Indication: MINERAL SUPPLEMENTATION
     Route: 048
  12. FAMOTIDINE [Concomitant]
     Indication: GASTROOESOPHAGEAL REFLUX DISEASE
     Route: 048
     Dates: start: 20030101
  13. ACETAMINOPHEN [Concomitant]
     Indication: PAIN
     Route: 048

REACTIONS (2)
  - ACCIDENTAL EXPOSURE [None]
  - INJECTION SITE IRRITATION [None]
